FAERS Safety Report 10522378 (Version 1)
Quarter: 2014Q4

REPORT INFORMATION
  Report Type: Spontaneous
  Country: US (occurrence: US)
  Receive Date: 20141016
  Receipt Date: 20141016
  Transmission Date: 20150528
  Serious: Yes (Other)
  Sender: FDA-Public Use
  Company Number: US-GLAXOSMITHKLINE-US2014GSK007210

PATIENT
  Sex: Male

DRUGS (1)
  1. WELLBUTRIN XL [Suspect]
     Active Substance: BUPROPION HYDROCHLORIDE
     Indication: PRODUCT USED FOR UNKNOWN INDICATION
     Dosage: UNK, U
     Route: 048
     Dates: start: 201409

REACTIONS (9)
  - Hostility [Unknown]
  - Adverse event [Unknown]
  - Agitation [Unknown]
  - Nervousness [Unknown]
  - Aggression [Unknown]
  - Hallucination, visual [Unknown]
  - Irritability [Unknown]
  - Anger [Unknown]
  - Paranoia [Unknown]

NARRATIVE: CASE EVENT DATE: 2014
